FAERS Safety Report 12192322 (Version 1)
Quarter: 2016Q1

REPORT INFORMATION
  Report Type: Spontaneous
  Country: FR (occurrence: FR)
  Receive Date: 20160318
  Receipt Date: 20160318
  Transmission Date: 20160526
  Serious: Yes (Hospitalization)
  Sender: FDA-Public Use
  Company Number: FR-ASTRAZENECA-2016SE27941

PATIENT
  Age: 17685 Day
  Sex: Male

DRUGS (4)
  1. XEROQUEL [Suspect]
     Active Substance: QUETIAPINE FUMARATE
     Indication: PRODUCT USED FOR UNKNOWN INDICATION
     Route: 048
     Dates: start: 20160125, end: 20160125
  2. LEXOMIL [Suspect]
     Active Substance: BROMAZEPAM
     Route: 065
     Dates: start: 20160125, end: 20160125
  3. VENLAFAXINE [Suspect]
     Active Substance: VENLAFAXINE HYDROCHLORIDE
     Route: 065
     Dates: start: 20160125, end: 20160125
  4. IMOVANE [Suspect]
     Active Substance: ZOPICLONE
     Route: 065
     Dates: start: 20160125, end: 20160125

REACTIONS (4)
  - Toxicity to various agents [Unknown]
  - Urinary retention [Recovered/Resolved]
  - Sinus bradycardia [Recovered/Resolved]
  - Somnolence [Recovered/Resolved]

NARRATIVE: CASE EVENT DATE: 20160125
